FAERS Safety Report 9200157 (Version 1)
Quarter: 2013Q1

REPORT INFORMATION
  Report Type: Spontaneous
  Country: GB (occurrence: GB)
  Receive Date: 20130329
  Receipt Date: 20130329
  Transmission Date: 20140127
  Serious: Yes (Hospitalization)
  Sender: FDA-Public Use
  Company Number: GB-ABBOTT-13X-167-1067365-00

PATIENT
  Age: 44 Year
  Sex: Female

DRUGS (5)
  1. SODIUM VALPROATE [Suspect]
     Indication: PRODUCT USED FOR UNKNOWN INDICATION
  2. HYTRIN [Interacting]
     Indication: PRODUCT USED FOR UNKNOWN INDICATION
     Route: 048
     Dates: start: 20050518
  3. IBUPROFEN [Interacting]
     Indication: PRODUCT USED FOR UNKNOWN INDICATION
  4. BENZTROPINE MESYLATE [Interacting]
     Indication: PRODUCT USED FOR UNKNOWN INDICATION
  5. CLOZAPINE [Interacting]
     Indication: PRODUCT USED FOR UNKNOWN INDICATION

REACTIONS (4)
  - Drug interaction [Unknown]
  - Pneumonia [Unknown]
  - Myoclonus [Not Recovered/Not Resolved]
  - Diarrhoea [Not Recovered/Not Resolved]
